FAERS Safety Report 11839454 (Version 2)
Quarter: 2015Q4

REPORT INFORMATION
  Report Type: Other
  Country: DK (occurrence: DK)
  Receive Date: 20151216
  Receipt Date: 20151228
  Transmission Date: 20160305
  Serious: Yes (Life-Threatening)
  Sender: FDA-Public Use
  Company Number: DK-ASTELLAS-2015US047013

PATIENT
  Age: 52 Year
  Sex: Female

DRUGS (1)
  1. RAPISCAN [Suspect]
     Active Substance: REGADENOSON
     Indication: SCAN MYOCARDIAL PERFUSION
     Dosage: 400 ?G, OTHER (1 IN 1 D)
     Route: 042
     Dates: start: 20150119, end: 20150119

REACTIONS (1)
  - Neurogenic shock [Recovered/Resolved]

NARRATIVE: CASE EVENT DATE: 20150119
